FAERS Safety Report 21566180 (Version 1)
Quarter: 2022Q4

REPORT INFORMATION
  Report Type: Spontaneous
  Country: US (occurrence: US)
  Receive Date: 20221108
  Receipt Date: 20221108
  Transmission Date: 20230113
  Serious: No
  Sender: FDA-Public Use
  Company Number: US-NOVOPROD-882290

PATIENT
  Sex: Female

DRUGS (3)
  1. NOVOLOG [Concomitant]
     Active Substance: INSULIN ASPART
     Indication: Type 1 diabetes mellitus
     Dosage: 20-25 UNITS TO 50-60 UNITS PER DAY
     Route: 058
     Dates: end: 20220414
  2. FIASP [Suspect]
     Active Substance: INSULIN ASPART
     Indication: Type 1 diabetes mellitus
     Dosage: UNK
     Route: 058
  3. FIASP [Suspect]
     Active Substance: INSULIN ASPART
     Dosage: UNK (DOSE INCREASED)
     Route: 058
     Dates: end: 20220413

REACTIONS (5)
  - Flushing [Unknown]
  - Contusion [Unknown]
  - Insulin resistance [Unknown]
  - Blood glucose increased [Unknown]
  - Product quality issue [Unknown]
